FAERS Safety Report 20860982 (Version 2)
Quarter: 2022Q3

REPORT INFORMATION
  Report Type: Report from Study
  Country: FR (occurrence: None)
  Receive Date: 20220523
  Receipt Date: 20220712
  Transmission Date: 20221026
  Serious: Yes (Other)
  Sender: FDA-Public Use
  Company Number: FR-ROCHE-3095370

PATIENT
  Age: 45 Year
  Sex: Female
  Weight: 62 kg

DRUGS (10)
  1. OCRELIZUMAB [Suspect]
     Active Substance: OCRELIZUMAB
     Indication: Progressive multiple sclerosis
     Dosage: THIS WAS BASELINE (WEEK 0) DOSE.?NEXT DOSE (WEEK 2) RECEIVED ON 08/MAR/2021.?ON 24/JAN/2022, AT 11:4
     Route: 042
     Dates: start: 20210222
  2. OCRELIZUMAB [Suspect]
     Active Substance: OCRELIZUMAB
     Dosage: THIS WAS WEEK 24 (VISIT 4) DOSE.
     Route: 042
     Dates: start: 20210802
  3. OCRELIZUMAB [Suspect]
     Active Substance: OCRELIZUMAB
     Dosage: THIS WAS WEEK 48 (VISIT 5) DOSE. START TIME WAS 11:45.
     Route: 042
     Dates: start: 20220124
  4. METHYLPREDNISOLONE [Concomitant]
     Active Substance: METHYLPREDNISOLONE
     Indication: Premedication
     Dosage: THIS WAS BASELINE (WEEK 0)?ADDITIONAL TREATMENT DATES: 08/MAR/2021 (WEEK 2), 02/AUG/2021 (WEEK 24) A
     Route: 042
     Dates: start: 20210222, end: 20210222
  5. POLARAMINE [Concomitant]
     Active Substance: DEXCHLORPHENIRAMINE MALEATE
     Indication: Premedication
     Dosage: THIS WAS BASELINE (WEEK 0)?ADDITIONAL TREATMENT DATES: 08/MAR/2021 (WEEK 2), 02/AUG/2021 (WEEK 24) A
     Route: 042
     Dates: start: 20210222, end: 20210222
  6. PERFALGAN [Concomitant]
     Active Substance: ACETAMINOPHEN
     Indication: Premedication
     Dosage: THIS WAS BASELINE (WEEK 0)?ADDITIONAL TREATMENT DATES: 08/MAR/2021 (WEEK 2), 02/AUG/2021 (WEEK 24) A
     Route: 042
     Dates: start: 20210222, end: 20210222
  7. LEVOTHYROXINE [Concomitant]
     Active Substance: LEVOTHYROXINE
     Route: 048
     Dates: start: 2018
  8. FOLIC ACID [Concomitant]
     Active Substance: FOLIC ACID
     Route: 048
     Dates: start: 2019
  9. DALFAMPRIDINE [Concomitant]
     Active Substance: DALFAMPRIDINE
     Indication: Multiple sclerosis
     Route: 048
     Dates: start: 20210420
  10. CALCIFEDIOL [Concomitant]
     Active Substance: CALCIFEDIOL
     Route: 048
     Dates: start: 20210625

REACTIONS (1)
  - COVID-19 [Recovered/Resolved]

NARRATIVE: CASE EVENT DATE: 20220506
